FAERS Safety Report 12273335 (Version 1)
Quarter: 2016Q2

REPORT INFORMATION
  Report Type: Spontaneous
  Country: US (occurrence: US)
  Receive Date: 20160415
  Receipt Date: 20160415
  Transmission Date: 20160815
  Serious: Yes (Other)
  Sender: FDA-Public Use
  Company Number: US-ROCHE-1108909

PATIENT
  Sex: Male

DRUGS (4)
  1. PEGASYS [Suspect]
     Active Substance: PEGINTERFERON ALFA-2A
     Indication: CHRONIC HEPATITIS C
     Route: 058
     Dates: start: 20120504
  2. TELAPREVIR [Suspect]
     Active Substance: TELAPREVIR
     Indication: CHRONIC HEPATITIS C
     Route: 065
     Dates: start: 20120504, end: 20120706
  3. RIBASPHERE [Suspect]
     Active Substance: RIBAVIRIN
     Dosage: 90 MCG /WEEK
     Route: 048
     Dates: start: 20120706
  4. RIBASPHERE [Suspect]
     Active Substance: RIBAVIRIN
     Indication: CHRONIC HEPATITIS C
     Dosage: IN DIVIDED DOSES OF 600/400 MG
     Route: 048
     Dates: start: 20120504

REACTIONS (2)
  - Psoriasis [Unknown]
  - Platelet count decreased [Unknown]
